FAERS Safety Report 5589242-X (Version None)
Quarter: 2008Q1

REPORT INFORMATION
  Report Type: 
  Country: None (occurrence: None)
  Receive Date: 20080108
  Receipt Date: 20071221
  Transmission Date: 20080703
  Serious: Yes (Death, Hospitalization, Congenital Anomaly)
  Sender: FDA-Public Use
  Company Number: WAES 00025236

PATIENT
  Sex: Female

DRUGS (1)
  1. COZAAR [Suspect]
     Dosage: PO
     Route: 048

REACTIONS (8)
  - CAESAREAN SECTION [None]
  - DIALYSIS [None]
  - DRUG EXPOSURE DURING PREGNANCY [None]
  - FOETAL GROWTH RETARDATION [None]
  - GROWTH RETARDATION [None]
  - PREGNANCY [None]
  - PREMATURE BABY [None]
  - RENAL FAILURE [None]
